FAERS Safety Report 23721453 (Version 1)
Quarter: 2024Q2

REPORT INFORMATION
  Report Type: Spontaneous
  Country: CA (occurrence: CA)
  Receive Date: 20240409
  Receipt Date: 20240409
  Transmission Date: 20240716
  Serious: Yes (Other)
  Sender: FDA-Public Use
  Company Number: CA-CELLTRION INC.-2024CA008372

PATIENT

DRUGS (2)
  1. INFLECTRA [Suspect]
     Active Substance: INFLIXIMAB-DYYB
     Indication: Colitis ulcerative
     Dosage: 5 MG/KG, MAINTENANCE Q 8 WEEKS
     Route: 042
     Dates: start: 20240220
  2. INFLECTRA [Suspect]
     Active Substance: INFLIXIMAB-DYYB
     Dosage: 5 MG/KG (515 MG), LOADING DOSE #2 (MAINTENANCE Q 8 WEEKS)
     Route: 042
     Dates: start: 20240308

REACTIONS (3)
  - Groin pain [Recovering/Resolving]
  - Body temperature increased [Unknown]
  - Off label use [Unknown]

NARRATIVE: CASE EVENT DATE: 20240220
